FAERS Safety Report 12229584 (Version 1)
Quarter: 2016Q1

REPORT INFORMATION
  Report Type: Spontaneous
  Country: US (occurrence: None)
  Receive Date: 20160331
  Receipt Date: 20160331
  Transmission Date: 20160526
  Serious: No
  Sender: FDA-Public Use
  Company Number: None

PATIENT
  Age: 34 Year
  Sex: Female

DRUGS (1)
  1. TEMOZOLOMIDE 100MG SANDOZ [Suspect]
     Active Substance: TEMOZOLOMIDE
     Indication: BRAIN NEOPLASM MALIGNANT
     Dosage: 300MG DAILY FOR 5 DAYS EVERY 28 DAYS ORAL
     Route: 048
     Dates: start: 20150917

REACTIONS (2)
  - Pain in extremity [None]
  - Joint stiffness [None]

NARRATIVE: CASE EVENT DATE: 20160320
